FAERS Safety Report 24071092 (Version 1)
Quarter: 2024Q3

REPORT INFORMATION
  Report Type: Spontaneous
  Country: US (occurrence: None)
  Receive Date: 20240709
  Receipt Date: 20240709
  Transmission Date: 20241017
  Serious: Yes (Hospitalization)
  Sender: Public
  Company Number: None

PATIENT
  Sex: Male

DRUGS (7)
  1. OXBRYTA [Suspect]
     Active Substance: VOXELOTOR
     Indication: Thalassaemia sickle cell
     Dosage: FREQUENCY : DAILY;?
     Route: 048
     Dates: start: 202209
  2. OXBRYTA [Suspect]
     Active Substance: VOXELOTOR
     Indication: Sickle cell disease
  3. OXBRYTA [Suspect]
     Active Substance: VOXELOTOR
     Indication: Iron metabolism disorder
  4. DEFERASIROX [Suspect]
     Active Substance: DEFERASIROX
     Indication: Thalassaemia sickle cell
     Dosage: FREQUENCY : DAILY;?
     Route: 048
     Dates: start: 202403
  5. DEFERASIROX [Suspect]
     Active Substance: DEFERASIROX
     Indication: Sickle cell disease
  6. DEFERASIROX [Suspect]
     Active Substance: DEFERASIROX
     Indication: Iron metabolism disorder
  7. JADENU [Concomitant]
     Active Substance: DEFERASIROX

REACTIONS (3)
  - Sickle cell anaemia with crisis [None]
  - Product use issue [None]
  - Product dose omission in error [None]
